FAERS Safety Report 16569797 (Version 1)
Quarter: 2019Q3

REPORT INFORMATION
  Report Type: Spontaneous
  Country: US (occurrence: US)
  Receive Date: 20190715
  Receipt Date: 20190715
  Transmission Date: 20191004
  Serious: Yes (Other)
  Sender: FDA-Public Use
  Company Number: US-009507513-1907USA004128

PATIENT
  Age: 50 Year
  Sex: Female
  Weight: 136.1 kg

DRUGS (6)
  1. SEVOFLURANE. [Concomitant]
     Active Substance: SEVOFLURANE
     Indication: ANAESTHESIA
     Dosage: 0.5 MINIMUM ALVEOLAR CONCENTRATION (MAC), UNK
  2. ROCURONIUM BROMIDE. [Concomitant]
     Active Substance: ROCURONIUM BROMIDE
     Indication: ANAESTHESIA
     Dosage: 50 MILLIGRAM, UNK
  3. DEXMEDETOMIDINE. [Suspect]
     Active Substance: DEXMEDETOMIDINE
     Indication: SEDATION
     Dosage: 1 MICROGRAM PER KILOGRAM, UNK
  4. SEVOFLURANE. [Concomitant]
     Active Substance: SEVOFLURANE
     Dosage: 1 MINIMUM ALVEOLAR CONCENTRATION (MAC), UNK
  5. BRIDION [Suspect]
     Active Substance: SUGAMMADEX
     Indication: NEUROMUSCULAR BLOCKADE REVERSAL
     Dosage: 1200 MILLIGRAM (8.8 MG/KG) (55% OF THE CALCULATED DOSE), UNK
  6. DEXMEDETOMIDINE. [Suspect]
     Active Substance: DEXMEDETOMIDINE
     Dosage: 0.4 MCG/KG/H, UNK

REACTIONS (1)
  - Cardiac arrest [Recovered/Resolved]
